FAERS Safety Report 16003335 (Version 1)
Quarter: 2019Q1

REPORT INFORMATION
  Report Type: Spontaneous
  Country: US (occurrence: US)
  Receive Date: 20190226
  Receipt Date: 20190226
  Transmission Date: 20190418
  Serious: Yes (Other)
  Sender: FDA-Public Use
  Company Number: US-IMPAX LABORATORIES, LLC-2019-IPXL-00563

PATIENT
  Age: 8 Day
  Sex: Male
  Weight: 3 kg

DRUGS (3)
  1. IOHEXOL [Suspect]
     Active Substance: IOHEXOL
     Indication: CYSTIC LYMPHANGIOMA
     Dosage: 10 MILLILITER
     Route: 065
  2. DOXYCYCLINE HYCLATE DELAYED RELEASE [Suspect]
     Active Substance: DOXYCYCLINE HYCLATE
     Dosage: 300 MILLIGRAM
     Route: 065
  3. DOXYCYCLINE HYCLATE DELAYED RELEASE [Suspect]
     Active Substance: DOXYCYCLINE HYCLATE
     Indication: CYSTIC LYMPHANGIOMA
     Dosage: 500 MILLIGRAM, (?150 MG/KG)
     Route: 065

REACTIONS (7)
  - Methaemoglobinaemia [Recovered/Resolved]
  - Hypoglycaemia [Unknown]
  - Haemolytic anaemia [Unknown]
  - Off label use [Unknown]
  - Metabolic acidosis [Unknown]
  - Prescribed overdose [Unknown]
  - Chromaturia [Unknown]
